FAERS Safety Report 4552932-1 (Version None)
Quarter: 2005Q1

REPORT INFORMATION
  Report Type: 
  Country: None (occurrence: None)
  Receive Date: 20050113
  Receipt Date: 20041229
  Transmission Date: 20050727
  Serious: Yes (Other)
  Sender: FDA-Public Use
  Company Number: MC200400934

PATIENT

DRUGS (1)
  1. BIVALIRUDIN (BIVALIRUDIN) INJECTION [Suspect]
     Dosage: SEE IMAGE
     Route: 042

REACTIONS (2)
  - AMPUTATION [None]
  - PERIPHERAL ISCHAEMIA [None]
